FAERS Safety Report 8207612-8 (Version None)
Quarter: 2012Q1

REPORT INFORMATION
  Report Type: 
  Country: None (occurrence: None)
  Receive Date: 20120314
  Receipt Date: 20120314
  Transmission Date: 20120608
  Serious: Yes (Disabling)
  Sender: FDA-Public Use
  Company Number: None

PATIENT
  Age: 60 Year
  Sex: Male
  Weight: 86.4 kg

DRUGS (1)
  1. HEPAGAM B [Suspect]
     Indication: ANTIVIRAL PROPHYLAXIS
     Dosage: 10,000 IU ORDERED -50,000 IU-
     Route: 041
     Dates: start: 20120302, end: 20120303

REACTIONS (3)
  - RENAL FAILURE ACUTE [None]
  - DRUG LEVEL DECREASED [None]
  - INCORRECT DOSE ADMINISTERED [None]
